FAERS Safety Report 8047204 (Version 2)
Quarter: 2013Q1

REPORT INFORMATION
  Report Type: Report from Study
  Country: BE (occurrence: BE)
  Receive Date: 20110721
  Receipt Date: 20130329
  Transmission Date: 20140127
  Serious: Yes (Hospitalization)
  Sender: FDA-Public Use
  Company Number: BE-SANOFI-AVENTIS-2011SA044626

PATIENT
  Age: 72 Year
  Sex: Female
  Weight: 62.3 kg

DRUGS (8)
  1. DOCETAXEL [Suspect]
     Indication: BREAST CANCER METASTATIC
     Route: 041
     Dates: start: 20091021, end: 20091021
  2. BLINDED THERAPY [Suspect]
     Indication: BREAST CANCER METASTATIC
     Route: 041
     Dates: start: 20091021, end: 20091021
  3. BLINDED THERAPY [Suspect]
     Indication: BREAST CANCER METASTATIC
     Route: 041
     Dates: start: 20091202, end: 20091202
  4. XANAX [Concomitant]
     Dates: start: 2009
  5. LITICAN [Concomitant]
     Dates: start: 20091021, end: 20091029
  6. MEDROL [Concomitant]
     Dates: start: 20091020, end: 20091022
  7. CLEXANE [Concomitant]
     Dates: start: 20091022, end: 20091030
  8. GLAZIDIM [Concomitant]
     Dates: start: 20091028, end: 20091103

REACTIONS (4)
  - Syncope [Recovered/Resolved]
  - Febrile neutropenia [Recovered/Resolved]
  - Stomatitis [Recovered/Resolved]
  - Facial bones fracture [Recovered/Resolved]
